FAERS Safety Report 17441526 (Version 1)
Quarter: 2020Q1

REPORT INFORMATION
  Report Type: Spontaneous
  Country: US (occurrence: US)
  Receive Date: 20200220
  Receipt Date: 20200220
  Transmission Date: 20200409
  Serious: Yes (Other)
  Sender: FDA-Public Use
  Company Number: US-JNJFOC-20200221113

PATIENT
  Sex: Female

DRUGS (1)
  1. TOPAMAX [Suspect]
     Active Substance: TOPIRAMATE
     Indication: TREMOR
     Route: 048

REACTIONS (3)
  - Product use in unapproved indication [Unknown]
  - Neoplasm malignant [Not Recovered/Not Resolved]
  - Off label use [Unknown]
